FAERS Safety Report 9216150 (Version 2)
Quarter: 2013Q2

REPORT INFORMATION
  Report Type: Spontaneous
  Country: FR (occurrence: FR)
  Receive Date: 20130408
  Receipt Date: 20130418
  Transmission Date: 20140414
  Serious: Yes (Other)
  Sender: FDA-Public Use
  Company Number: FR-JNJFOC-20130400189

PATIENT
  Age: 63 Year
  Sex: Female

DRUGS (11)
  1. REMICADE [Suspect]
     Indication: ANKYLOSING SPONDYLITIS
     Route: 042
  2. REMICADE [Suspect]
     Indication: ANKYLOSING SPONDYLITIS
     Dosage: TOLERANCE INDUCTION, STAGES OF 15 MINUTES
     Route: 042
     Dates: start: 20121003
  3. REMICADE [Suspect]
     Indication: ANKYLOSING SPONDYLITIS
     Dosage: NEW TOLERANCE INDUCTION, AT 10TH STAGE
     Route: 042
     Dates: start: 20130213
  4. IXPRIM [Concomitant]
     Route: 065
  5. EFFERALGAN [Concomitant]
     Route: 065
  6. SALAZOPYRINE [Concomitant]
     Route: 065
  7. VITAMIN D [Concomitant]
     Route: 065
  8. COKENZEN [Concomitant]
     Route: 065
  9. UTROGESTAN [Concomitant]
     Route: 065
  10. ESTREVA [Concomitant]
     Route: 065
  11. EFFEXOR [Concomitant]
     Route: 065

REACTIONS (11)
  - Laryngeal discomfort [Recovered/Resolved]
  - Nausea [Recovered/Resolved]
  - Chest discomfort [Recovered/Resolved]
  - Pruritus [Recovered/Resolved]
  - Erythema [Recovered/Resolved]
  - Malaise [Recovered/Resolved]
  - Paraesthesia [Recovered/Resolved]
  - Speech disorder [Recovered/Resolved]
  - Hypotension [Recovered/Resolved]
  - Cough [Recovered/Resolved]
  - Hypersensitivity [Recovered/Resolved]
